FAERS Safety Report 12145977 (Version 1)
Quarter: 2016Q1

REPORT INFORMATION
  Report Type: Spontaneous
  Country: US (occurrence: None)
  Receive Date: 20160303
  Receipt Date: 20160303
  Transmission Date: 20160526
  Serious: Yes (Hospitalization)
  Sender: FDA-Public Use
  Company Number: None

PATIENT
  Age: 58 Year
  Sex: Male
  Weight: 61.19 kg

DRUGS (15)
  1. ASPIRIN. [Concomitant]
     Active Substance: ASPIRIN
  2. LIPITOR [Concomitant]
     Active Substance: ATORVASTATIN CALCIUM
  3. CELEXA [Concomitant]
     Active Substance: CITALOPRAM HYDROBROMIDE
  4. PLAVIX [Concomitant]
     Active Substance: CLOPIDOGREL BISULFATE
  5. EFUDEX [Concomitant]
     Active Substance: FLUOROURACIL
  6. VICTOZA [Concomitant]
     Active Substance: LIRAGLUTIDE
  7. METOPROLOL. [Concomitant]
     Active Substance: METOPROLOL
  8. DACLATASVIR 60MG [Suspect]
     Active Substance: DACLATASVIR
     Indication: HEPATITIS C
     Route: 048
     Dates: start: 20151123
  9. AZELAIC ACID. [Concomitant]
     Active Substance: AZELAIC ACID
  10. CUPROPION [Concomitant]
  11. VASOTEC [Concomitant]
     Active Substance: ENALAPRIL MALEATE
  12. METFORMIN [Concomitant]
     Active Substance: METFORMIN HYDROCHLORIDE
  13. ANTARA [Concomitant]
     Active Substance: FENOFIBRATE
  14. LASIX [Concomitant]
     Active Substance: FUROSEMIDE
  15. SOFOSBUVIR 400MG GILEAD [Suspect]
     Active Substance: SOFOSBUVIR
     Indication: HEPATITIS C
     Route: 048
     Dates: start: 20151123

REACTIONS (3)
  - Blood glucose increased [None]
  - Cellulitis [None]
  - Joint swelling [None]

NARRATIVE: CASE EVENT DATE: 20151128
